FAERS Safety Report 14017645 (Version 3)
Quarter: 2019Q3

REPORT INFORMATION
  Report Type: Spontaneous
  Country: US (occurrence: US)
  Receive Date: 20170927
  Receipt Date: 20190829
  Transmission Date: 20191004
  Serious: No
  Sender: FDA-Public Use
  Company Number: US-BIOGEN-2017BI00462672

PATIENT
  Sex: Female

DRUGS (1)
  1. TYSABRI [Suspect]
     Active Substance: NATALIZUMAB
     Indication: MULTIPLE SCLEROSIS
     Route: 065
     Dates: start: 20171005, end: 20171109

REACTIONS (3)
  - Dyspnoea [Recovered/Resolved]
  - Lyme disease [Not Recovered/Not Resolved]
  - Multiple sclerosis relapse [Unknown]
